FAERS Safety Report 8881492 (Version 2)
Quarter: 2012Q4

REPORT INFORMATION
  Report Type: Report from Study
  Country: US (occurrence: US)
  Receive Date: 20121102
  Receipt Date: 20121119
  Transmission Date: 20130627
  Serious: Yes (Hospitalization, Other)
  Sender: FDA-Public Use
  Company Number: US-ASTELLAS-2012US010544

PATIENT
  Age: 55 Year
  Sex: Male

DRUGS (13)
  1. ERLOTINIB TABLET [Suspect]
     Indication: HEAD AND NECK CANCER
     Dosage: 150 mg, UID/QD
     Route: 048
     Dates: start: 20120918, end: 20121017
  2. ERLOTINIB TABLET [Suspect]
     Dosage: 100 mg, UID/QD
     Route: 048
     Dates: start: 20121030
  3. DOCETAXEL [Suspect]
     Indication: HEAD AND NECK CANCER
     Dosage: 75 mg/m2, Unknown/D
     Route: 065
     Dates: start: 20121009
  4. CISPLATIN [Suspect]
     Indication: HEAD AND NECK CANCER
     Dosage: 75 mg/m2, Unknown/D
     Route: 065
     Dates: start: 20121009
  5. AMLODIPINE [Concomitant]
     Indication: PRODUCT USED FOR UNKNOWN INDICATION
     Dosage: 10 mg, UID/QD
     Route: 048
  6. ESCITALOPRAM [Concomitant]
     Indication: PRODUCT USED FOR UNKNOWN INDICATION
     Dosage: 10 mg, UID/QD
     Route: 048
  7. FOSINOPRIL [Concomitant]
     Indication: PRODUCT USED FOR UNKNOWN INDICATION
     Dosage: 40 mg, UID/QD
     Route: 048
  8. HYDROCHLOROTHIAZIDE [Concomitant]
     Indication: PRODUCT USED FOR UNKNOWN INDICATION
     Dosage: 12.5 mg, UID/QD
     Route: 048
  9. ONDANSETRON [Concomitant]
     Indication: NAUSEA
     Dosage: 8 mg, Q6 hours
     Route: 048
  10. ONDANSETRON [Concomitant]
     Indication: VOMITING
  11. VITAMIN D3 [Concomitant]
     Indication: PRODUCT USED FOR UNKNOWN INDICATION
     Dosage: 1 DF, UID/QD
     Route: 048
  12. VITAMINS WITH MINERALS [Concomitant]
     Indication: PRODUCT USED FOR UNKNOWN INDICATION
     Dosage: 1 DF, UID/QD
     Route: 048
  13. ASPIRIN [Concomitant]
     Indication: PRODUCT USED FOR UNKNOWN INDICATION
     Dosage: 1 DF, UID/QD
     Route: 065

REACTIONS (8)
  - Off label use [Unknown]
  - Anaemia [Recovering/Resolving]
  - Duodenal ulcer [Recovering/Resolving]
  - Upper gastrointestinal haemorrhage [Recovered/Resolved]
  - Blood urea increased [Recovering/Resolving]
  - Duodenitis [Unknown]
  - Gastritis erosive [Recovering/Resolving]
  - Tachycardia [Unknown]
